FAERS Safety Report 6430163-8 (Version None)
Quarter: 2009Q4

REPORT INFORMATION
  Report Type: 
  Country: None (occurrence: None)
  Receive Date: 20091106
  Receipt Date: 20091026
  Transmission Date: 20100525
  Serious: Yes (Other)
  Sender: FDA-Public Use
  Company Number: PHHY2009JP44976

PATIENT
  Age: 24 Year
  Sex: Female

DRUGS (10)
  1. CYCLOSPORINE [Suspect]
     Indication: APLASTIC ANAEMIA
     Dosage: UNK
     Dates: start: 20010101
  2. CYCLOSPORINE [Suspect]
     Indication: STEM CELL TRANSPLANT
     Dosage: UNK
     Dates: start: 20040101
  3. CYCLOSPORINE [Suspect]
     Indication: PROPHYLAXIS AGAINST GRAFT VERSUS HOST DISEASE
     Dosage: UNK
     Dates: start: 20070101
  4. FK 506 [Suspect]
     Indication: PROPHYLAXIS AGAINST GRAFT VERSUS HOST DISEASE
     Dosage: UNK
     Dates: start: 20070101
  5. METHYLPREDNISOLONE 4MG TAB [Concomitant]
     Indication: PROPHYLAXIS AGAINST GRAFT VERSUS HOST DISEASE
     Dosage: UNK
     Dates: start: 20070101
  6. MYCOPHENOLATE MOFETIL [Concomitant]
     Indication: PROPHYLAXIS AGAINST GRAFT VERSUS HOST DISEASE
     Dosage: UNK
     Dates: start: 20070101
  7. ANTILYMPHOCYTE GLOBULIN [Concomitant]
     Indication: APLASTIC ANAEMIA
     Dosage: UNK
     Dates: start: 20010101
  8. ANTILYMPHOCYTE GLOBULIN [Concomitant]
     Dosage: UNK
     Dates: start: 20040101
  9. NEUPOGEN [Concomitant]
     Indication: APLASTIC ANAEMIA
     Dosage: UNK
     Dates: start: 20010101
  10. NEUPOGEN [Concomitant]
     Dosage: UNK
     Dates: start: 20040101

REACTIONS (10)
  - BLOOD PRODUCT TRANSFUSION DEPENDENT [None]
  - BLUNTED AFFECT [None]
  - CYSTITIS HAEMORRHAGIC [None]
  - DEPRESSION [None]
  - IRON OVERLOAD [None]
  - LIVER DISORDER [None]
  - MULTI-ORGAN DISORDER [None]
  - PANCYTOPENIA [None]
  - STEM CELL TRANSPLANT [None]
  - TOXIC ENCEPHALOPATHY [None]
